FAERS Safety Report 6337347-8 (Version None)
Quarter: 2009Q3

REPORT INFORMATION
  Report Type: 
  Country: None (occurrence: None)
  Receive Date: 20090902
  Receipt Date: 20070611
  Transmission Date: 20100115
  Serious: Yes (Other)
  Sender: FDA-Public Use
  Company Number: US-ASTRAZENECA-2006UW25177

PATIENT
  Age: 45 Year
  Sex: Male
  Weight: 127.9 kg

DRUGS (11)
  1. SEROQUEL [Suspect]
     Indication: SCHIZOPHRENIA
     Dosage: 50-100 MG, DAILY AT NIGHT
     Route: 048
     Dates: start: 20040311
  2. SEROQUEL [Suspect]
     Indication: DEPRESSION
     Dosage: 50-100 MG, DAILY AT NIGHT
     Route: 048
     Dates: start: 20040311
  3. SEROQUEL [Suspect]
     Indication: PSYCHOTIC DISORDER
     Dosage: 50-100 MG, DAILY AT NIGHT
     Route: 048
     Dates: start: 20040311
  4. ZYPREXA [Concomitant]
  5. LASIX [Concomitant]
     Dates: start: 20031107
  6. RISPERDAL [Concomitant]
     Dates: start: 20040301
  7. ZOLOFT [Concomitant]
     Dates: start: 20031107
  8. TRAZODONE [Concomitant]
     Dates: start: 20031107
  9. NORVASC [Concomitant]
     Indication: HYPERTENSION
     Dates: start: 20040623
  10. ALBUTEROL [Concomitant]
     Dates: start: 20031106
  11. DILTIAZEM [Concomitant]
     Dates: start: 20031107

REACTIONS (5)
  - DIABETES MELLITUS [None]
  - DIABETIC NEUROPATHY [None]
  - NEUROLEPTIC MALIGNANT SYNDROME [None]
  - NEUROPATHY PERIPHERAL [None]
  - TYPE 2 DIABETES MELLITUS [None]
